FAERS Safety Report 9281652 (Version 1)
Quarter: 2013Q2

REPORT INFORMATION
  Report Type: Spontaneous
  Country: US (occurrence: US)
  Receive Date: 20130509
  Receipt Date: 20130509
  Transmission Date: 20140414
  Serious: Yes (Disabling)
  Sender: FDA-Public Use
  Company Number: US-MYLANLABS-2013S1009516

PATIENT
  Age: 84 Year
  Sex: Female

DRUGS (2)
  1. PHENOBARBITAL [Suspect]
     Indication: CONVULSION
     Route: 065
  2. PHENYTOIN [Suspect]
     Indication: CONVULSION
     Route: 065

REACTIONS (3)
  - Gait disturbance [Recovered/Resolved]
  - Dysarthria [Recovered/Resolved]
  - Cognitive disorder [Recovered/Resolved]
